FAERS Safety Report 23890342 (Version 1)
Quarter: 2024Q2

REPORT INFORMATION
  Report Type: Spontaneous
  Country: CN (occurrence: None)
  Receive Date: 20240523
  Receipt Date: 20240523
  Transmission Date: 20240716
  Serious: Yes (Life-Threatening)
  Sender: FDA-Public Use
  Company Number: 2024A118864

PATIENT
  Age: 72 Year
  Sex: Female
  Weight: 45 kg

DRUGS (2)
  1. BUDESONIDE\FORMOTEROL FUMARATE [Suspect]
     Active Substance: BUDESONIDE\FORMOTEROL FUMARATE
     Indication: Dyspnoea
     Dosage: 4.5 UG, TWO TIMES A DAY
     Route: 055
     Dates: start: 20240518, end: 20240519
  2. THEOPHYLLINE [Concomitant]
     Active Substance: THEOPHYLLINE
     Indication: Dyspnoea
     Route: 048
     Dates: start: 20240518, end: 20240519

REACTIONS (1)
  - Shock [Recovering/Resolving]

NARRATIVE: CASE EVENT DATE: 20240519
